FAERS Safety Report 21923618 (Version 2)
Quarter: 2023Q1

REPORT INFORMATION
  Report Type: Other
  Country: GB (occurrence: None)
  Receive Date: 20230130
  Receipt Date: 20230224
  Transmission Date: 20230417
  Serious: Yes (Death, Hospitalization)
  Sender: FDA-Public Use
  Company Number: GB-ROCHE-3226748

PATIENT
  Sex: Male

DRUGS (1)
  1. ESBRIET [Suspect]
     Active Substance: PIRFENIDONE
     Indication: Product used for unknown indication
     Dosage: 3 TDS
     Route: 048
     Dates: start: 20221006

REACTIONS (5)
  - Death [Fatal]
  - Hip fracture [Unknown]
  - Fall [Unknown]
  - Malaise [Unknown]
  - Product storage error [Unknown]
